FAERS Safety Report 4836734-4 (Version None)
Quarter: 2005Q4

REPORT INFORMATION
  Report Type: 
  Country: None (occurrence: None)
  Receive Date: 20051123
  Receipt Date: 20051115
  Transmission Date: 20060501
  Serious: Yes (Disabling)
  Sender: FDA-Public Use
  Company Number: US-MERCK-0511USA03056

PATIENT
  Age: 65 Year
  Sex: Male

DRUGS (2)
  1. VIOXX [Suspect]
     Route: 048
     Dates: start: 20000701, end: 20040801
  2. VIOXX [Suspect]
     Route: 048
     Dates: start: 20000701, end: 20040801

REACTIONS (2)
  - CEREBROVASCULAR ACCIDENT [None]
  - POLYTRAUMATISM [None]
